FAERS Safety Report 15332495 (Version 1)
Quarter: 2018Q3

REPORT INFORMATION
  Report Type: Report from Study
  Country: None (occurrence: GR)
  Receive Date: 20180830
  Receipt Date: 20180830
  Transmission Date: 20181010
  Serious: Yes (Hospitalization, Disabling, Other)
  Sender: FDA-Public Use
  Company Number: GR-ABBVIE-18S-066-2465644-00

PATIENT
  Age: 80 Year
  Sex: Female
  Weight: 70 kg

DRUGS (5)
  1. DUODOPA [Suspect]
     Active Substance: CARBIDOPA\LEVODOPA
     Indication: PARKINSON^S DISEASE
     Dosage: MORNING DOSE:7.0ML; CONTINUOUS RATE: 3.6ML/H; EXTRA DOSE:2.0ML
     Route: 050
     Dates: start: 20140901
  2. GUTRON [Concomitant]
     Active Substance: MIDODRINE
     Indication: BLOOD PRESSURE MANAGEMENT
     Route: 048
  3. LAMICTAL [Concomitant]
     Active Substance: LAMOTRIGINE
     Indication: PRODUCT USED FOR UNKNOWN INDICATION
     Route: 048
  4. CILROTON [Concomitant]
     Indication: PRODUCT USED FOR UNKNOWN INDICATION
     Route: 048
  5. LACIPIL [Concomitant]
     Active Substance: LACIDIPINE
     Indication: BLOOD PRESSURE MANAGEMENT
     Route: 048

REACTIONS (6)
  - Epilepsy [Recovered/Resolved]
  - Seizure [Not Recovered/Not Resolved]
  - Bedridden [Not Recovered/Not Resolved]
  - Epilepsy [Recovered/Resolved]
  - Feeding disorder [Not Recovered/Not Resolved]
  - Drug effect decreased [Not Recovered/Not Resolved]

NARRATIVE: CASE EVENT DATE: 201805
